FAERS Safety Report 20128189 (Version 1)
Quarter: 2021Q4

REPORT INFORMATION
  Report Type: Report from Study
  Country: FR (occurrence: FR)
  Receive Date: 20211129
  Receipt Date: 20211129
  Transmission Date: 20220303
  Serious: Yes (Hospitalization)
  Sender: FDA-Public Use
  Company Number: FR-ROCHE-2895838

PATIENT
  Age: 58 Year
  Sex: Female

DRUGS (8)
  1. OXALIPLATIN [Suspect]
     Active Substance: OXALIPLATIN
     Indication: Colorectal cancer metastatic
     Dosage: 137.5 MILLIGRAM
     Route: 041
     Dates: start: 20210628
  2. OXALIPLATIN [Suspect]
     Active Substance: OXALIPLATIN
     Dosage: 225 MILLIGRAM
     Route: 041
     Dates: start: 20210719
  3. BEVACIZUMAB [Suspect]
     Active Substance: BEVACIZUMAB
     Indication: Colorectal cancer metastatic
     Dosage: 587 MILLIGRAM
     Route: 065
     Dates: start: 20210719
  4. CAPECITABINE [Suspect]
     Active Substance: CAPECITABINE
     Indication: Colorectal cancer metastatic
     Dosage: 1300 MILLIGRAM, 31/JUL/2021:DATE OF LAST DOSE (1300 MG)ADMINISTRATION PRIOR TO SAE. 5200 MG
     Route: 048
     Dates: start: 20210628, end: 20210731
  5. YTTRIUM CHLORIDE Y-90 [Suspect]
     Active Substance: YTTRIUM CHLORIDE Y-90
     Indication: Colorectal cancer metastatic
     Dosage: UNK
     Route: 041
     Dates: start: 20210721
  6. ATEZOLIZUMAB [Suspect]
     Active Substance: ATEZOLIZUMAB
     Indication: Colorectal cancer metastatic
     Dosage: 1200 MILLIGRAM
     Route: 041
     Dates: start: 20210628
  7. ATEZOLIZUMAB [Suspect]
     Active Substance: ATEZOLIZUMAB
     Dosage: 1200 MILLIGRAM
     Route: 041
     Dates: start: 20210719
  8. ESOMEPRAZOLE                       /01479302/ [Concomitant]
     Dosage: 40 MILLIGRAM
     Dates: start: 2021

REACTIONS (2)
  - Ill-defined disorder [Recovered/Resolved]
  - Vomiting [Not Recovered/Not Resolved]

NARRATIVE: CASE EVENT DATE: 20210731
